FAERS Safety Report 8008673-1 (Version None)
Quarter: 2011Q4

REPORT INFORMATION
  Report Type: 
  Country: None (occurrence: None)
  Receive Date: 20111227
  Receipt Date: 20111214
  Transmission Date: 20120403
  Serious: Yes (Life-Threatening, Hospitalization)
  Sender: FDA-Public Use
  Company Number: JP-MERCK-1111USA03842

PATIENT
  Age: 63 Year
  Sex: Female
  Weight: 30 kg

DRUGS (6)
  1. LASIX [Suspect]
     Indication: OEDEMA
     Route: 048
     Dates: start: 20110401, end: 20111121
  2. HERBS (UNSPECIFIED) [Concomitant]
     Indication: MALAISE
     Route: 065
     Dates: start: 20111115, end: 20111118
  3. PEPCID RPD [Suspect]
     Indication: ABDOMINAL DISCOMFORT
     Route: 048
     Dates: start: 20111101, end: 20111121
  4. ONEALFA [Concomitant]
     Indication: RENAL FAILURE CHRONIC
     Route: 065
     Dates: start: 20111101
  5. ALLOPURINOL [Concomitant]
     Indication: HYPERURICAEMIA
     Route: 065
  6. EPOETIN BETA [Concomitant]
     Route: 065
     Dates: start: 20111115

REACTIONS (1)
  - INAPPROPRIATE ANTIDIURETIC HORMONE SECRETION [None]
